FAERS Safety Report 5901573-X (Version None)
Quarter: 2008Q3

REPORT INFORMATION
  Report Type: 
  Country: None (occurrence: None)
  Receive Date: 20080929
  Receipt Date: 20080923
  Transmission Date: 20090109
  Serious: Yes (Hospitalization)
  Sender: FDA-Public Use
  Company Number: US-AVENTIS-200816257US

PATIENT
  Sex: Male
  Weight: 12.7 kg

DRUGS (4)
  1. LOVENOX [Suspect]
     Dosage: DOSE: 40 MG QD VIA MOTHER
     Route: 063
     Dates: start: 20060112
  2. PRENATAL VITAMINS                  /01549301/ [Concomitant]
     Dosage: DOSE: UNK
     Route: 065
  3. TYLENOL (CAPLET) [Concomitant]
     Dosage: DOSE: UNK
  4. MOTRIN [Concomitant]
     Dosage: DOSE: UNK

REACTIONS (6)
  - DEHYDRATION [None]
  - DRUG EXPOSURE VIA BREAST MILK [None]
  - LUNG DISORDER [None]
  - MATERNAL DRUGS AFFECTING FOETUS [None]
  - PNEUMONIA [None]
  - TONSILLITIS [None]
